FAERS Safety Report 25116833 (Version 2)
Quarter: 2025Q1

REPORT INFORMATION
  Report Type: Spontaneous
  Country: DE (occurrence: DE)
  Receive Date: 20250325
  Receipt Date: 20250328
  Transmission Date: 20250408
  Serious: Yes (Hospitalization, Other)
  Sender: AUROBINDO
  Company Number: DE-STADA-01359950

PATIENT
  Age: 8 Year
  Sex: Male

DRUGS (49)
  1. CARBAMAZEPINE [Interacting]
     Active Substance: CARBAMAZEPINE
     Indication: Partial seizures
     Route: 065
  2. CARBAMAZEPINE [Interacting]
     Active Substance: CARBAMAZEPINE
     Indication: Seizure
  3. CARBAMAZEPINE [Interacting]
     Active Substance: CARBAMAZEPINE
     Indication: Generalised tonic-clonic seizure
  4. CARBAMAZEPINE [Interacting]
     Active Substance: CARBAMAZEPINE
     Indication: Rasmussen encephalitis
  5. LACOSAMIDE [Suspect]
     Active Substance: LACOSAMIDE
     Indication: Partial seizures
     Route: 065
  6. LACOSAMIDE [Suspect]
     Active Substance: LACOSAMIDE
     Indication: Seizure
  7. LACOSAMIDE [Suspect]
     Active Substance: LACOSAMIDE
     Indication: Generalised tonic-clonic seizure
  8. LACOSAMIDE [Suspect]
     Active Substance: LACOSAMIDE
     Indication: Rasmussen encephalitis
  9. LAMOTRIGINE [Interacting]
     Active Substance: LAMOTRIGINE
     Indication: Partial seizures
     Route: 065
  10. LAMOTRIGINE [Interacting]
     Active Substance: LAMOTRIGINE
     Indication: Seizure
  11. LAMOTRIGINE [Interacting]
     Active Substance: LAMOTRIGINE
     Indication: Generalised tonic-clonic seizure
  12. LAMOTRIGINE [Interacting]
     Active Substance: LAMOTRIGINE
     Indication: Rasmussen encephalitis
  13. LEVETIRACETAM [Suspect]
     Active Substance: LEVETIRACETAM
     Indication: Partial seizures
     Route: 065
  14. LEVETIRACETAM [Suspect]
     Active Substance: LEVETIRACETAM
     Indication: Seizure
  15. LEVETIRACETAM [Suspect]
     Active Substance: LEVETIRACETAM
     Indication: Generalised tonic-clonic seizure
  16. LEVETIRACETAM [Suspect]
     Active Substance: LEVETIRACETAM
     Indication: Rasmussen encephalitis
  17. TOPIRAMATE [Suspect]
     Active Substance: TOPIRAMATE
     Indication: Partial seizures
     Route: 065
  18. TOPIRAMATE [Suspect]
     Active Substance: TOPIRAMATE
     Indication: Seizure
  19. TOPIRAMATE [Suspect]
     Active Substance: TOPIRAMATE
     Indication: Generalised tonic-clonic seizure
  20. TOPIRAMATE [Suspect]
     Active Substance: TOPIRAMATE
     Indication: Rasmussen encephalitis
  21. ZONISAMIDE [Suspect]
     Active Substance: ZONISAMIDE
     Indication: Partial seizures
     Route: 065
  22. ZONISAMIDE [Suspect]
     Active Substance: ZONISAMIDE
     Indication: Seizure
  23. ZONISAMIDE [Suspect]
     Active Substance: ZONISAMIDE
     Indication: Generalised tonic-clonic seizure
  24. ZONISAMIDE [Suspect]
     Active Substance: ZONISAMIDE
     Indication: Rasmussen encephalitis
  25. VALPROATE [Suspect]
     Active Substance: VALPROIC ACID
     Indication: Partial seizures
     Route: 065
  26. VALPROATE [Suspect]
     Active Substance: VALPROIC ACID
     Indication: Seizure
  27. VALPROATE [Suspect]
     Active Substance: VALPROIC ACID
     Indication: Generalised tonic-clonic seizure
  28. VALPROATE [Suspect]
     Active Substance: VALPROIC ACID
     Indication: Rasmussen encephalitis
  29. PHENOBARBITAL [Suspect]
     Active Substance: PHENOBARBITAL
     Indication: Partial seizures
     Route: 065
  30. PHENOBARBITAL [Suspect]
     Active Substance: PHENOBARBITAL
     Indication: Seizure
     Route: 065
  31. PHENOBARBITAL [Suspect]
     Active Substance: PHENOBARBITAL
     Indication: Generalised tonic-clonic seizure
     Route: 065
  32. PHENOBARBITAL [Suspect]
     Active Substance: PHENOBARBITAL
     Indication: Rasmussen encephalitis
     Route: 065
  33. PHENOBARBITAL [Suspect]
     Active Substance: PHENOBARBITAL
     Route: 065
  34. OXCARBAZEPINE [Interacting]
     Active Substance: OXCARBAZEPINE
     Indication: Partial seizures
     Route: 065
  35. OXCARBAZEPINE [Interacting]
     Active Substance: OXCARBAZEPINE
     Indication: Seizure
  36. OXCARBAZEPINE [Interacting]
     Active Substance: OXCARBAZEPINE
     Indication: Generalised tonic-clonic seizure
  37. OXCARBAZEPINE [Interacting]
     Active Substance: OXCARBAZEPINE
     Indication: Rasmussen encephalitis
  38. PHENYTOIN [Suspect]
     Active Substance: PHENYTOIN
     Indication: Partial seizures
     Route: 065
  39. PHENYTOIN [Suspect]
     Active Substance: PHENYTOIN
     Indication: Seizure
  40. PHENYTOIN [Suspect]
     Active Substance: PHENYTOIN
     Indication: Generalised tonic-clonic seizure
  41. PHENYTOIN [Suspect]
     Active Substance: PHENYTOIN
     Indication: Rasmussen encephalitis
  42. CENOBAMATE [Suspect]
     Active Substance: CENOBAMATE
     Indication: Partial seizures
     Dosage: 100 MILLIGRAM, ONCE A DAY
     Route: 065
  43. CENOBAMATE [Suspect]
     Active Substance: CENOBAMATE
     Indication: Rasmussen encephalitis
     Dosage: 200 MILLIGRAM, ONCE A DAY
     Route: 065
  44. CENOBAMATE [Suspect]
     Active Substance: CENOBAMATE
     Dosage: 300 MILLIGRAM, ONCE A DAY
     Route: 065
  45. CENOBAMATE [Suspect]
     Active Substance: CENOBAMATE
     Route: 065
  46. TACROLIMUS [Concomitant]
     Active Substance: TACROLIMUS
     Indication: Partial seizures
     Route: 065
  47. TACROLIMUS [Concomitant]
     Active Substance: TACROLIMUS
     Indication: Immunomodulatory therapy
  48. TACROLIMUS [Concomitant]
     Active Substance: TACROLIMUS
     Indication: Rasmussen encephalitis
  49. Amytal [Concomitant]
     Indication: Wada test
     Route: 065

REACTIONS (10)
  - Drug ineffective [Unknown]
  - Pancreatitis [Unknown]
  - Ataxia [Unknown]
  - Vision blurred [Unknown]
  - Diplopia [Unknown]
  - Dysarthria [Unknown]
  - Sedation [Unknown]
  - Epilepsy [Recovering/Resolving]
  - Rebound effect [Recovering/Resolving]
  - Drug interaction [Unknown]
